FAERS Safety Report 19813831 (Version 1)
Quarter: 2021Q3

REPORT INFORMATION
  Report Type: Report from Study
  Country: US (occurrence: US)
  Receive Date: 20210909
  Receipt Date: 20210909
  Transmission Date: 20211014
  Serious: Yes (Death, Hospitalization)
  Sender: FDA-Public Use
  Company Number: US-ROCHE-2893654

PATIENT
  Sex: Male

DRUGS (3)
  1. OBINUTUZUMAB. [Suspect]
     Active Substance: OBINUTUZUMAB
     Indication: CHRONIC LYMPHOCYTIC LEUKAEMIA REFRACTORY
     Dosage: RECEIVED TREATMENT OVER 4?6 HOURS ON DAYS 1, 2, 8, AND 15 OF CYCLE 15 AND DAY 1 OF CYCLES 16?20
     Route: 042
     Dates: start: 20210511
  2. VENETOCLAX. [Suspect]
     Active Substance: VENETOCLAX
     Indication: CHRONIC LYMPHOCYTIC LEUKAEMIA REFRACTORY
     Dosage: BEGINNING CYCLE 3 TWICE A DAY ON DAYS 1?28
     Route: 048
     Dates: start: 20210803, end: 20210804
  3. ACALABRUTINIB. [Suspect]
     Active Substance: ACALABRUTINIB
     Indication: CHRONIC LYMPHOCYTIC LEUKAEMIA REFRACTORY
     Dosage: TWICE A DAY ON DAYS 1?28
     Route: 065
     Dates: start: 20210803, end: 20210804

REACTIONS (1)
  - COVID-19 [Fatal]

NARRATIVE: CASE EVENT DATE: 20210804
